FAERS Safety Report 13915123 (Version 1)
Quarter: 2017Q3

REPORT INFORMATION
  Report Type: Spontaneous
  Country: US (occurrence: US)
  Receive Date: 20170828
  Receipt Date: 20170828
  Transmission Date: 20171127
  Serious: Yes (Other)
  Sender: FDA-Public Use
  Company Number: None

PATIENT
  Age: 19 Year
  Sex: Male
  Weight: 66 kg

DRUGS (1)
  1. KEFLEX [Suspect]
     Active Substance: CEPHALEXIN
     Indication: ABSCESS LIMB

REACTIONS (4)
  - Erythema [None]
  - Condition aggravated [None]
  - Abscess limb [None]
  - Peripheral swelling [None]

NARRATIVE: CASE EVENT DATE: 20170827
